FAERS Safety Report 7549406-2 (Version None)
Quarter: 2011Q2

REPORT INFORMATION
  Report Type: 
  Country: None (occurrence: None)
  Receive Date: 20110615
  Receipt Date: 20110531
  Transmission Date: 20111010
  Serious: Yes (Hospitalization, Other)
  Sender: FDA-Public Use
  Company Number: US-BAYER-201010212NA

PATIENT
  Age: 33 Year
  Sex: Female
  Weight: 81.633 kg

DRUGS (7)
  1. MOTRIN [Concomitant]
     Dosage: UNK UNK, PRN
  2. EXCEDRIN (MIGRAINE) [Concomitant]
     Indication: HEADACHE
     Dosage: UNK UNK, PRN
     Dates: start: 20080120
  3. ADVIL LIQUI-GELS [Concomitant]
     Indication: HEADACHE
     Dosage: UNK UNK, PRN
  4. YAZ [Suspect]
     Indication: PREMENSTRUAL SYNDROME
  5. VERAPAMIL [Concomitant]
     Indication: BLOOD PRESSURE ABNORMAL
  6. YAZ [Suspect]
     Indication: CONTRACEPTION
     Dosage: UNK
     Route: 048
     Dates: start: 20070701, end: 20080120
  7. VERAPAMIL [Concomitant]
     Indication: MIGRAINE PROPHYLAXIS

REACTIONS (8)
  - ISCHAEMIC STROKE [None]
  - GAIT DISTURBANCE [None]
  - COORDINATION ABNORMAL [None]
  - CENTRAL NERVOUS SYSTEM LESION [None]
  - BALANCE DISORDER [None]
  - HEMIPARESIS [None]
  - SENSORY LOSS [None]
  - FATIGUE [None]
